FAERS Safety Report 8995550 (Version 2)
Quarter: 2013Q1

REPORT INFORMATION
  Report Type: Spontaneous
  Country: US (occurrence: US)
  Receive Date: 20130103
  Receipt Date: 20130315
  Transmission Date: 20140127
  Serious: Yes (Hospitalization, Other)
  Sender: FDA-Public Use
  Company Number: US-ABBOTT-12P-163-1025138-00

PATIENT
  Age: 72 None
  Sex: Female
  Weight: 55.4 kg

DRUGS (13)
  1. SYNTHROID [Suspect]
     Indication: HYPOTHYROIDISM
     Route: 048
     Dates: start: 2000
  2. SYNTHROID [Suspect]
     Route: 048
     Dates: start: 201211
  3. PLAQUENIL [Suspect]
     Indication: SCLERODERMA
     Route: 048
     Dates: start: 2000, end: 20121106
  4. BOSENTAN [Concomitant]
     Indication: PULMONARY HYPERTENSION
  5. PAXIL [Concomitant]
     Indication: ANXIETY
     Route: 048
  6. PAXIL [Concomitant]
     Indication: DEPRESSION
  7. PLAVIX [Concomitant]
     Indication: SUPRAVENTRICULAR TACHYCARDIA
     Route: 048
     Dates: start: 20080711
  8. RESTASIS [Concomitant]
     Indication: DRY EYE
     Dosage: OU
     Route: 047
     Dates: start: 2003
  9. LOMOTIL [Concomitant]
     Indication: CONSTIPATION
     Route: 048
  10. ASA [Concomitant]
     Indication: PROPHYLAXIS
     Dates: start: 2007
  11. SUPER B COMPLEX [Concomitant]
     Indication: PRODUCT USED FOR UNKNOWN INDICATION
     Route: 048
     Dates: start: 20091107
  12. VITAMIN D [Concomitant]
     Indication: VITAMIN SUPPLEMENTATION
     Route: 048
     Dates: start: 2010
  13. DILTIAZEM [Concomitant]
     Indication: PRODUCT USED FOR UNKNOWN INDICATION

REACTIONS (19)
  - CREST syndrome [Unknown]
  - Fatigue [Recovered/Resolved]
  - Supraventricular tachycardia [Unknown]
  - Anaemia of chronic disease [Unknown]
  - Fatigue [Unknown]
  - Fall [Unknown]
  - Blood glucose decreased [Unknown]
  - Blood sodium decreased [Unknown]
  - Dizziness [Unknown]
  - Syncope [Unknown]
  - Hypotension [Unknown]
  - Heart rate increased [Unknown]
  - Weight decreased [Unknown]
  - Dyspnoea exertional [Unknown]
  - Tricuspid valve incompetence [Unknown]
  - Pericardial effusion [Unknown]
  - Pulmonary hypertension [Unknown]
  - Lung disorder [Unknown]
  - Hypothyroidism [Unknown]
